FAERS Safety Report 6546035-4 (Version None)
Quarter: 2010Q1

REPORT INFORMATION
  Report Type: 
  Country: None (occurrence: None)
  Receive Date: 20100121
  Receipt Date: 20100121
  Transmission Date: 20100710
  Serious: No
  Sender: FDA-Public Use
  Company Number: None

PATIENT
  Age: 79 Year
  Sex: Female

DRUGS (4)
  1. HYDROMORPHONE HCL [Suspect]
     Dosage: 0.5 MG ONCE IV
     Route: 042
  2. CLONAZEPAM [Suspect]
     Dosage: 0.5 MG PO
     Route: 048
  3. MIRTAZAPINE [Concomitant]
  4. PRIMIDONE [Concomitant]

REACTIONS (7)
  - DYSPNOEA [None]
  - HYPERCAPNIA [None]
  - HYPOTONIA [None]
  - RESPIRATORY ACIDOSIS [None]
  - RESPIRATORY FAILURE [None]
  - RESPIRATORY RATE DECREASED [None]
  - UNRESPONSIVE TO STIMULI [None]
